FAERS Safety Report 19850478 (Version 2)
Quarter: 2021Q4

REPORT INFORMATION
  Report Type: Spontaneous
  Country: US (occurrence: US)
  Receive Date: 20210918
  Receipt Date: 20211012
  Transmission Date: 20220303
  Serious: Yes (Hospitalization, Other)
  Sender: FDA-Public Use
  Company Number: US-ROCHE-2913945

PATIENT
  Sex: Female
  Weight: 79.45 kg

DRUGS (20)
  1. ESBRIET [Suspect]
     Active Substance: PIRFENIDONE
     Indication: Pulmonary fibrosis
     Route: 048
     Dates: start: 201801
  2. ESBRIET [Suspect]
     Active Substance: PIRFENIDONE
     Indication: Lung disorder
     Dosage: ONGOING-YES, (3) 267 MG TABLETS THREE TIMES DAILY
     Route: 048
     Dates: start: 2019
  3. ASPIRIN [Concomitant]
     Active Substance: ASPIRIN
     Indication: Cerebrovascular accident
     Dosage: ONGOING-YES
  4. AZOPT [Concomitant]
     Active Substance: BRINZOLAMIDE
     Indication: Cataract operation
     Dosage: ONGOING-YES
     Route: 031
  5. CALCIUM\VITAMIN D [Concomitant]
     Active Substance: CALCIUM\VITAMIN D
     Indication: Bone disorder
     Dosage: ONGOING-YES
     Route: 048
  6. FERROUS SULFATE [Concomitant]
     Active Substance: FERROUS SULFATE
     Dosage: ONGOING-YES
     Route: 048
     Dates: start: 2020
  7. FOLIC ACID [Concomitant]
     Active Substance: FOLIC ACID
     Dosage: ONGOING-YES
     Route: 048
     Dates: start: 1999
  8. KLOR-CON M10 [Concomitant]
     Active Substance: POTASSIUM CHLORIDE
     Route: 048
     Dates: start: 2018
  9. LOSARTAN POTASSIUM [Concomitant]
     Active Substance: LOSARTAN POTASSIUM
     Indication: Hypertension
     Dosage: ONGOING-YES
     Route: 048
     Dates: start: 1999
  10. LUMIGAN [Concomitant]
     Active Substance: BIMATOPROST
     Indication: Glaucoma
     Route: 031
     Dates: start: 2019
  11. MAGNESIUM [Concomitant]
     Active Substance: MAGNESIUM
     Dosage: ONGOING-YES
     Route: 048
     Dates: start: 2020
  12. METHOTREXATE [Concomitant]
     Active Substance: METHOTREXATE
     Indication: Polymyositis
     Dosage: (3) 2.5 MG TABLETS WEEKLY, ONGOING-YES
     Route: 048
     Dates: start: 1997
  13. REGLAN [Concomitant]
     Active Substance: METOCLOPRAMIDE HYDROCHLORIDE
     Indication: Flatulence
     Dosage: ONGOING-YES
     Route: 048
     Dates: start: 2020
  14. PRILOSEC [Concomitant]
     Active Substance: OMEPRAZOLE MAGNESIUM
     Indication: Flatulence
     Dosage: ONGOING-YES
     Route: 048
     Dates: start: 2020
  15. TYLENOL [Concomitant]
     Active Substance: ACETAMINOPHEN
     Indication: Pain
     Dosage: 300 MG/ 30 MQ 1 TABLET AS NEEDED FOR PAIN, ONGOING-YES
     Route: 048
     Dates: start: 2020
  16. VITAMIN D3 [Concomitant]
     Active Substance: CHOLECALCIFEROL
     Indication: Vitamin D decreased
     Dosage: ONGOING-YES
     Route: 048
     Dates: start: 2019
  17. PREDNISONE [Concomitant]
     Active Substance: PREDNISONE
     Indication: Polymyositis
     Dosage: (3) 1 MG TABLETS DAILY, ONGOING-YES
     Dates: start: 2018
  18. METFORMIN [Concomitant]
     Active Substance: METFORMIN HYDROCHLORIDE
     Indication: Blood glucose increased
     Route: 048
     Dates: start: 2021
  19. TRESIBA [Concomitant]
     Active Substance: INSULIN DEGLUDEC
     Indication: Blood glucose increased
     Dosage: ONGOING-YES
     Route: 058
     Dates: start: 2021
  20. NOVOLOG [Concomitant]
     Active Substance: INSULIN ASPART
     Indication: Blood glucose increased
     Dosage: ONGOING-YES, BREAKFAST, LUNCH AND DINNER AS NEEDED FOR HIGH BLOOD SUGARS
     Route: 058
     Dates: start: 2020

REACTIONS (9)
  - Parkinson^s disease [Unknown]
  - Heart rate irregular [Recovered/Resolved with Sequelae]
  - Pain in extremity [Unknown]
  - Chest pain [Unknown]
  - Sluggishness [Not Recovered/Not Resolved]
  - Dizziness [Not Recovered/Not Resolved]
  - Joint instability [Recovered/Resolved]
  - Flatulence [Recovered/Resolved]
  - Vomiting [Recovered/Resolved]

NARRATIVE: CASE EVENT DATE: 20200101
